FAERS Safety Report 7978132-0 (Version None)
Quarter: 2011Q4

REPORT INFORMATION
  Report Type: 
  Country: None (occurrence: None)
  Receive Date: 20111201
  Receipt Date: 20111124
  Transmission Date: 20120403
  Serious: Yes (Hospitalization)
  Sender: FDA-Public Use
  Company Number: 2011SP052260

PATIENT
  Age: 50 Year
  Sex: Male
  Weight: 61 kg

DRUGS (7)
  1. BOCEPREVIR (SCH-503034) [Suspect]
     Indication: HEPATITIS C
     Dosage: 800 MG; TID
     Dates: start: 20111006
  2. NORVIR [Concomitant]
  3. DESLORATADINE [Concomitant]
  4. VIRAFERONPEG [Suspect]
     Indication: HEPATITIS C
     Dosage: 0.5 ML; QW
     Dates: start: 20110909
  5. REBETOL [Suspect]
     Indication: HEPATITIS C
     Dosage: 400 MG; BID
     Dates: start: 20110909
  6. REYATAZ [Concomitant]
  7. TRUVADA [Concomitant]

REACTIONS (9)
  - ERYSIPELAS [None]
  - PYREXIA [None]
  - CELLULITIS [None]
  - BULLOUS IMPETIGO [None]
  - NEUTROPENIA [None]
  - CREATININE RENAL CLEARANCE DECREASED [None]
  - CONJUNCTIVITIS [None]
  - PYODERMA GANGRENOSUM [None]
  - LEUKOPENIA [None]
